FAERS Safety Report 14559725 (Version 7)
Quarter: 2018Q2

REPORT INFORMATION
  Report Type: Report from Study
  Country: US (occurrence: US)
  Receive Date: 20180221
  Receipt Date: 20180618
  Transmission Date: 20180711
  Serious: Yes (Other)
  Sender: FDA-Public Use
  Company Number: US-MALLINCKRODT-T201800016

PATIENT
  Sex: Female

DRUGS (2)
  1. REPOSITORY CORTICOTROPIN INJECTION [Suspect]
     Active Substance: CORTICOTROPIN
     Indication: PROTEINURIA
     Dosage: 80 UNITS / 1 ML, 2 TIMES PER WEEK (FRIDAY/TUESDAY AT NIGHT/EVENING)
     Route: 058
  2. REPOSITORY CORTICOTROPIN INJECTION [Suspect]
     Active Substance: CORTICOTROPIN
     Indication: FOCAL SEGMENTAL GLOMERULOSCLEROSIS
     Dosage: 80 UNITS / 1 ML, 2 TIMES PER WEEK (SATURDAY/WEDNESDAY)
     Route: 058
     Dates: start: 20170401

REACTIONS (19)
  - Diabetes mellitus [Unknown]
  - Dysgeusia [Unknown]
  - Confusional state [Unknown]
  - Malaise [Unknown]
  - Decreased appetite [Unknown]
  - Influenza [Unknown]
  - Gout [Unknown]
  - Tremor [Unknown]
  - Nervousness [Unknown]
  - Headache [Unknown]
  - Renal impairment [Unknown]
  - Focal segmental glomerulosclerosis [Unknown]
  - Productive cough [Unknown]
  - Fatigue [Unknown]
  - Disease progression [Unknown]
  - Dyspnoea [Unknown]
  - Asthenia [Unknown]
  - Blood pressure increased [Unknown]
  - Bronchitis [Recovering/Resolving]
